FAERS Safety Report 10922224 (Version 1)
Quarter: 2015Q1

REPORT INFORMATION
  Report Type: Spontaneous
  Country: ES (occurrence: None)
  Receive Date: 20150312
  Receipt Date: 20150312
  Transmission Date: 20150721
  Serious: Yes (Death, Other)
  Sender: FDA-Public Use
  Company Number: 2274809

PATIENT
  Age: 67 Year
  Sex: Male

DRUGS (7)
  1. FOLINIC ACID [Suspect]
     Active Substance: LEUCOVORIN
     Indication: RECTAL ADENOCARCINOMA
     Dosage: CYCLICAL
     Dates: start: 201106
  2. MITOMYCIN. [Suspect]
     Active Substance: MITOMYCIN
     Indication: RECTAL ADENOCARCINOMA
     Dosage: 6 MG/M2 MILLIGRAM(S)/SQ.METER, 1 WEEK
  3. RALTITREXED DISODIUM [Suspect]
     Active Substance: RALTITREXED
     Indication: RECTAL ADENOCARCINOMA
     Dosage: 3 MG/M2 MILLIGRAM(S)/SQ.METER, 1 WEEK
  4. 5-FLUOROURACIL /00098801/ [Suspect]
     Active Substance: FLUOROURACIL
     Indication: RECTAL ADENOCARCINOMA
     Dosage: CYCLICAL?
     Dates: start: 201106
  5. OXALIPLATIN. [Suspect]
     Active Substance: OXALIPLATIN
     Indication: RECTAL ADENOCARCINOMA
     Dosage: CYCLICAL?
     Dates: start: 201106
  6. IRINOTECAN HYDROCHLORIDE. [Suspect]
     Active Substance: IRINOTECAN HYDROCHLORIDE
     Indication: RECTAL ADENOCARCINOMA
     Dosage: CYCLICAL
     Dates: start: 20111017
  7. BEVACIZUMAB [Suspect]
     Active Substance: BEVACIZUMAB
     Indication: RECTAL ADENOCARCINOMA
     Dosage: CYCLICAL
     Dates: start: 201106

REACTIONS (6)
  - Neuropathy peripheral [None]
  - Nausea [None]
  - Neurotoxicity [None]
  - Hypertension [None]
  - Vomiting [None]
  - No therapeutic response [None]
